FAERS Safety Report 14603778 (Version 4)
Quarter: 2018Q2

REPORT INFORMATION
  Report Type: Spontaneous
  Country: US (occurrence: US)
  Receive Date: 20180306
  Receipt Date: 20180517
  Transmission Date: 20180711
  Serious: Yes (Hospitalization, Other)
  Sender: FDA-Public Use
  Company Number: US-BEH-2018088447

PATIENT
  Age: 53 Year
  Sex: Female

DRUGS (1)
  1. HIZENTRA [Suspect]
     Active Substance: HUMAN IMMUNOGLOBULIN G
     Indication: IMMUNODEFICIENCY COMMON VARIABLE
     Dosage: 10 G/50 ML, QW
     Route: 058
     Dates: start: 201707

REACTIONS (3)
  - Intestinal obstruction [Unknown]
  - Diverticulitis [Unknown]
  - Colorectal cancer stage II [Unknown]

NARRATIVE: CASE EVENT DATE: 20180207
